FAERS Safety Report 4578845-7 (Version None)
Quarter: 2005Q1

REPORT INFORMATION
  Report Type: 
  Country: None (occurrence: None)
  Receive Date: 20050207
  Receipt Date: 20050207
  Transmission Date: 20050727
  Serious: No
  Sender: FDA-Public Use
  Company Number: None

PATIENT

DRUGS (1)
  1. NEURONTIN [Suspect]
     Indication: POST HERPETIC NEURALGIA
     Dosage: 300 MG PO QID
     Route: 048

REACTIONS (3)
  - DRUG INEFFECTIVE [None]
  - HEADACHE [None]
  - PHARMACEUTICAL PRODUCT COMPLAINT [None]
